FAERS Safety Report 22315847 (Version 2)
Quarter: 2023Q2

REPORT INFORMATION
  Report Type: Spontaneous
  Country: DE (occurrence: DE)
  Receive Date: 20230512
  Receipt Date: 20230628
  Transmission Date: 20230722
  Serious: Yes (Other)
  Sender: FDA-Public Use
  Company Number: DE-ALXN-A202306163

PATIENT
  Sex: Female

DRUGS (1)
  1. ULTOMIRIS [Suspect]
     Active Substance: RAVULIZUMAB-CWVZ
     Indication: Myasthenia gravis
     Dosage: UNK
     Route: 065

REACTIONS (2)
  - Myasthenia gravis [Unknown]
  - General physical health deterioration [Unknown]
